FAERS Safety Report 24011009 (Version 1)
Quarter: 2024Q2

REPORT INFORMATION
  Report Type: Spontaneous
  Country: US (occurrence: None)
  Receive Date: 20240624
  Receipt Date: 20240624
  Transmission Date: 20240716
  Serious: Yes (Other)
  Sender: FDA-Public Use
  Company Number: None

PATIENT
  Age: 48 Year
  Sex: Female
  Weight: 83.25 kg

DRUGS (1)
  1. XOLAIR [Suspect]
     Active Substance: OMALIZUMAB
     Dosage: OTHER FREQUENCY : EVERY 4 WEEKS;?
     Route: 058

REACTIONS (2)
  - Alopecia [None]
  - Hypersensitivity [None]

NARRATIVE: CASE EVENT DATE: 20240624
